FAERS Safety Report 19613246 (Version 1)
Quarter: 2021Q3

REPORT INFORMATION
  Report Type: Spontaneous
  Country: US (occurrence: US)
  Receive Date: 20210726
  Receipt Date: 20210726
  Transmission Date: 20211014
  Serious: Yes (Other)
  Sender: FDA-Public Use
  Company Number: None

PATIENT
  Age: 34 Year
  Sex: Male

DRUGS (2)
  1. CLONAZEPAM. [Suspect]
     Active Substance: CLONAZEPAM
     Indication: ANXIETY
     Route: 048
     Dates: start: 20200225, end: 20210725
  2. ODEFSY 200/25/25 MG [Concomitant]
     Dates: start: 20210713, end: 20210726

REACTIONS (3)
  - Speech disorder [None]
  - Anxiety [None]
  - Mental impairment [None]

NARRATIVE: CASE EVENT DATE: 20210725
